FAERS Safety Report 25394066 (Version 2)
Quarter: 2025Q4

REPORT INFORMATION
  Report Type: Spontaneous
  Country: JP (occurrence: JP)
  Receive Date: 20250604
  Receipt Date: 20251223
  Transmission Date: 20260118
  Serious: Yes (Hospitalization, Other)
  Sender: MERCK SHARP & DOHME LLC
  Company Number: JP-009507513-2291168

PATIENT
  Age: 50 Year
  Sex: Female

DRUGS (1)
  1. KEYTRUDA [Suspect]
     Active Substance: PEMBROLIZUMAB
     Indication: Breast cancer female
     Route: 065

REACTIONS (15)
  - Rheumatoid arthritis [Unknown]
  - Dysstasia [Unknown]
  - Myalgia [Unknown]
  - Gait disturbance [Unknown]
  - Arthralgia [Unknown]
  - Asthenia [Unknown]
  - Myasthenia gravis [Unknown]
  - Musculoskeletal stiffness [Unknown]
  - Disorder of globe [Unknown]
  - Muscular weakness [Unknown]
  - Hypoaesthesia [Unknown]
  - Malaise [Unknown]
  - Diplopia [Unknown]
  - Myositis [Unknown]
  - Immune-mediated adrenal insufficiency [Unknown]
